FAERS Safety Report 10534688 (Version 2)
Quarter: 2014Q4

REPORT INFORMATION
  Report Type: Spontaneous
  Country: NL (occurrence: NL)
  Receive Date: 20141022
  Receipt Date: 20141203
  Transmission Date: 20150529
  Serious: Yes (Hospitalization, Other)
  Sender: FDA-Public Use
  Company Number: NL-GILEAD-2014-0119150

PATIENT
  Age: 53 Year
  Sex: Male
  Weight: 80.7 kg

DRUGS (7)
  1. MIRTAZAPINE. [Concomitant]
     Active Substance: MIRTAZAPINE
     Dosage: 15 MG, UNK
     Route: 048
     Dates: start: 20140113
  2. NOVOMIX [Concomitant]
     Active Substance: INSULIN ASPART
     Dosage: 40 IU, UNK
     Route: 058
     Dates: start: 20130315
  3. CITALOPRAM [Concomitant]
     Active Substance: CITALOPRAM HYDROBROMIDE
     Dosage: 200 MG, UNK
     Route: 048
     Dates: start: 20131118
  4. SOVALDI [Suspect]
     Active Substance: SOFOSBUVIR
     Indication: HEPATITIS C
     Dosage: 400 MG, UNK
     Route: 048
     Dates: start: 20140815
  5. DACLATASVIR [Concomitant]
     Active Substance: DACLATASVIR
     Dosage: 60 MG, UNK
     Route: 048
     Dates: start: 20140815
  6. TRUVADA [Concomitant]
     Active Substance: EMTRICITABINE\TENOFOVIR DISOPROXIL FUMARATE
     Dosage: UNK
     Route: 048
     Dates: start: 20131118
  7. RALTEGRAVIR [Concomitant]
     Active Substance: RALTEGRAVIR
     Dosage: 800 MG, UNK
     Route: 048
     Dates: start: 20131118

REACTIONS (5)
  - Immune reconstitution inflammatory syndrome [Unknown]
  - Dyspnoea [Recovered/Resolved]
  - Pyrexia [Unknown]
  - Chest pain [Recovered/Resolved]
  - Pyrexia [Recovered/Resolved]

NARRATIVE: CASE EVENT DATE: 20140922
